FAERS Safety Report 7704881-5 (Version None)
Quarter: 2011Q3

REPORT INFORMATION
  Report Type: 
  Country: None (occurrence: None)
  Receive Date: 20110823
  Receipt Date: 20110818
  Transmission Date: 20111222
  Serious: Yes (Other)
  Sender: FDA-Public Use
  Company Number: US-PFIZER INC-2011138449

PATIENT
  Sex: Female

DRUGS (1)
  1. CHANTIX [Suspect]
     Indication: SMOKING CESSATION THERAPY
     Dosage: 0.5MG AND 1MG
     Dates: start: 20070801, end: 20070901

REACTIONS (6)
  - MENTAL DISORDER [None]
  - PALPITATIONS [None]
  - ANXIETY [None]
  - DEPRESSION [None]
  - SUICIDAL IDEATION [None]
  - SKIN LESION [None]
